FAERS Safety Report 4662031-6 (Version None)
Quarter: 2005Q2

REPORT INFORMATION
  Report Type: 
  Country: None (occurrence: None)
  Receive Date: 20050516
  Receipt Date: 20050504
  Transmission Date: 20051028
  Serious: Yes (Hospitalization, Other)
  Sender: FDA-Public Use
  Company Number: US-ABBOTT-05P-163-0299809-00

PATIENT
  Sex: Female
  Weight: 93 kg

DRUGS (19)
  1. HUMIRA [Suspect]
     Indication: RHEUMATOID ARTHRITIS
     Route: 058
     Dates: start: 20030101, end: 20041031
  2. FEXOFENADINE HYDROCHLORIDE [Concomitant]
     Indication: HYPERSENSITIVITY
     Route: 048
  3. RISEDRONATE SODIUM [Concomitant]
     Indication: OSTEOPOROSIS PROPHYLAXIS
     Route: 048
     Dates: start: 20040101
  4. EPOGEN [Concomitant]
     Indication: ANAEMIA PROPHYLAXIS
     Dates: start: 20041101
  5. FOLIC ACID [Concomitant]
     Indication: VITAMIN SUPPLEMENTATION
     Route: 048
     Dates: start: 19990101
  6. MUCINEX [Concomitant]
     Indication: ASTHMA
     Route: 048
     Dates: start: 20000101
  7. ASCORBIC ACID [Concomitant]
     Indication: VITAMIN SUPPLEMENTATION
     Route: 048
  8. SPIRONOLACTONE [Concomitant]
     Indication: DIURETIC THERAPY
     Route: 048
     Dates: start: 20010101
  9. ZELNORM [Concomitant]
     Indication: GASTROOESOPHAGEAL REFLUX DISEASE
     Route: 048
     Dates: start: 20030101
  10. ZAFIRLUKAST [Concomitant]
     Indication: ASTHMA
     Route: 048
  11. IPRATROPIUM BROMIDE [Concomitant]
     Indication: ASTHMA
     Route: 055
  12. SALBUTAMOL [Concomitant]
     Indication: ASTHMA
     Route: 055
  13. FLUTICASONE PROPIONATE [Concomitant]
     Indication: ASTHMA
     Route: 055
  14. ATORVASTATIN CALCIUM [Concomitant]
     Indication: BLOOD CHOLESTEROL INCREASED
     Route: 048
     Dates: start: 20000101
  15. VITACON FORTE [Concomitant]
     Indication: VITAMIN SUPPLEMENTATION
     Route: 048
  16. PENTAZOCINE LACTATE [Concomitant]
     Indication: PAIN
     Route: 048
  17. PROPACET 100 [Concomitant]
     Indication: PAIN
     Route: 048
  18. TOCOPHEROL CONCENTRATE CAP [Concomitant]
     Indication: VITAMIN SUPPLEMENTATION
     Route: 048
  19. AMITRIPTYLINE HYDROCHLORIDE [Concomitant]
     Indication: MIGRAINE
     Route: 048
     Dates: start: 19980101

REACTIONS (2)
  - HIP FRACTURE [None]
  - MULTIPLE MYELOMA [None]
